FAERS Safety Report 24951293 (Version 2)
Quarter: 2025Q1

REPORT INFORMATION
  Report Type: Report from Study
  Country: DE (occurrence: DE)
  Receive Date: 20250210
  Receipt Date: 20250221
  Transmission Date: 20250408
  Serious: Yes (Death)
  Sender: TEVA
  Company Number: DE-TEVA-VS-3295542

PATIENT

DRUGS (1)
  1. TADALAFIL [Suspect]
     Active Substance: TADALAFIL
     Indication: Systemic right ventricle
     Route: 065

REACTIONS (1)
  - Therapy non-responder [Fatal]
